FAERS Safety Report 10614893 (Version 2)
Quarter: 2014Q4

REPORT INFORMATION
  Report Type: Spontaneous
  Country: DE (occurrence: DE)
  Receive Date: 20141201
  Receipt Date: 20141230
  Transmission Date: 20150529
  Serious: Yes (Other)
  Sender: FDA-Public Use
  Company Number: DE-UCBSA-2014019390

PATIENT
  Sex: Female
  Weight: 60 kg

DRUGS (7)
  1. SERTRALINE [Concomitant]
     Active Substance: SERTRALINE HYDROCHLORIDE
     Dosage: 200 MG PER DAY
     Dates: start: 20141017
  2. LAMOTRIGINE. [Suspect]
     Active Substance: LAMOTRIGINE
     Indication: JUVENILE MYOCLONIC EPILEPSY
     Dosage: 50 MG, 2X/DAY (BID)
     Route: 048
     Dates: start: 20140401, end: 20141017
  3. VALPROATE [Concomitant]
     Active Substance: VALPROATE SODIUM
     Indication: PRODUCT USED FOR UNKNOWN INDICATION
     Dosage: UNKNOWN
  4. LEVETIRACETAM. [Suspect]
     Active Substance: LEVETIRACETAM
     Dosage: 1500 MG, 2X/DAY (BID)
     Route: 048
     Dates: start: 20141017
  5. LAMOTRIGINE. [Suspect]
     Active Substance: LAMOTRIGINE
     Dosage: 100 MG
     Dates: start: 2014
  6. SERTRALINE [Concomitant]
     Active Substance: SERTRALINE HYDROCHLORIDE
     Indication: DEPRESSION
     Dosage: 50 MG PER DAY
     Dates: start: 201402
  7. LEVETIRACETAM. [Suspect]
     Active Substance: LEVETIRACETAM
     Indication: JUVENILE MYOCLONIC EPILEPSY
     Dosage: 1000 MG, 2X/DAY (BID) FOR YEARS
     Route: 048
     Dates: end: 201410

REACTIONS (6)
  - Myoclonic epilepsy [Unknown]
  - Off label use [Unknown]
  - Seizure [Not Recovered/Not Resolved]
  - Generalised tonic-clonic seizure [Unknown]
  - Depression [Recovered/Resolved]
  - Petit mal epilepsy [Not Recovered/Not Resolved]

NARRATIVE: CASE EVENT DATE: 20141017
